FAERS Safety Report 7326368-4 (Version None)
Quarter: 2011Q1

REPORT INFORMATION
  Report Type: 
  Country: None (occurrence: None)
  Receive Date: 20110302
  Receipt Date: 20110217
  Transmission Date: 20110831
  Serious: Yes (Other)
  Sender: FDA-Public Use
  Company Number: PHHY2011FR14570

PATIENT
  Age: 70 Year
  Sex: Male

DRUGS (1)
  1. TAREG [Suspect]
     Dosage: 80 MG, UNK
     Route: 048

REACTIONS (1)
  - HERPES ZOSTER OPHTHALMIC [None]
